FAERS Safety Report 13466119 (Version 19)
Quarter: 2020Q2

REPORT INFORMATION
  Report Type: Spontaneous
  Country: US (occurrence: US)
  Receive Date: 20170421
  Receipt Date: 20200409
  Transmission Date: 20200713
  Serious: Yes (Other)
  Sender: FDA-Public Use
  Company Number: US-PFIZER INC-2017172966

PATIENT
  Age: 61 Year
  Sex: Female

DRUGS (15)
  1. IBRANCE [Suspect]
     Active Substance: PALBOCICLIB
     Dosage: 125 MG, CYCLIC (125 MG ONCE A DAY FOR 21 DAYS)
     Route: 048
     Dates: start: 20170314, end: 201703
  2. NASOMAR [Concomitant]
     Dosage: UNK
  3. VITAMIN B COMPLEX NOS [Concomitant]
     Active Substance: CYANOCOBALAMIN\PYRIDOXINE HYDROCHLORIDE\RIBOFLAVIN\SODIUM PANTOTHENATE\THIAMINE HYDROCHLORIDE\VITAMIN B COMPLEX
     Dosage: UNK
  4. LYSINE [Concomitant]
     Active Substance: LYSINE
     Dosage: UNK
  5. IBRANCE [Suspect]
     Active Substance: PALBOCICLIB
     Indication: BREAST CANCER FEMALE
     Dosage: 125 MG, DAILY
     Route: 048
     Dates: start: 20160328
  6. XANAX [Concomitant]
     Active Substance: ALPRAZOLAM
     Dosage: UNK
  7. VITAMIN C [Concomitant]
     Active Substance: ASCORBIC ACID
     Dosage: UNK
  8. IBUPROFEN. [Concomitant]
     Active Substance: IBUPROFEN
     Dosage: UNK
  9. AMBIEN [Concomitant]
     Active Substance: ZOLPIDEM TARTRATE
     Dosage: UNK
  10. ZOVIRAX [Concomitant]
     Active Substance: ACYCLOVIR
     Dosage: UNK
  11. IBRANCE [Suspect]
     Active Substance: PALBOCICLIB
     Dosage: 125 MG, CYCLIC (ONCE A DAY, 3 WEEKS ON, 1 WEEK OFF) (DAYS1-21 )
     Route: 048
     Dates: start: 20170328
  12. IBRANCE [Suspect]
     Active Substance: PALBOCICLIB
     Dosage: 125 MG, DAILY
     Dates: start: 20170329
  13. CELEBREX [Concomitant]
     Active Substance: CELECOXIB
     Dosage: UNK
  14. CAL + D [Concomitant]
     Dosage: UNK
  15. FEMARA [Concomitant]
     Active Substance: LETROZOLE
     Dosage: UNK

REACTIONS (24)
  - Head discomfort [Unknown]
  - Insomnia [Unknown]
  - Decreased appetite [Unknown]
  - Oral candidiasis [Unknown]
  - Dysgeusia [Unknown]
  - Headache [Unknown]
  - Amnesia [Unknown]
  - Vision blurred [Unknown]
  - Disturbance in attention [Unknown]
  - Dyspepsia [Unknown]
  - Memory impairment [Unknown]
  - Alopecia [Unknown]
  - Myalgia [Unknown]
  - Feeling abnormal [Unknown]
  - Arthralgia [Unknown]
  - Onychoclasis [Unknown]
  - Nausea [Unknown]
  - Dizziness [Unknown]
  - Hot flush [Unknown]
  - Neuropathy peripheral [Unknown]
  - Fatigue [Unknown]
  - Oral herpes [Unknown]
  - Constipation [Unknown]
  - Stomatitis [Unknown]

NARRATIVE: CASE EVENT DATE: 201704
